FAERS Safety Report 6669808-6 (Version None)
Quarter: 2010Q2

REPORT INFORMATION
  Report Type: 
  Country: None (occurrence: None)
  Receive Date: 20100402
  Receipt Date: 20100324
  Transmission Date: 20101027
  Serious: Yes (Hospitalization)
  Sender: FDA-Public Use
  Company Number: 2010SP017800

PATIENT
  Age: 25 Year
  Sex: Female

DRUGS (1)
  1. REMERGIL (MIRTAZAPINE /01293201/) [Suspect]
     Indication: DEPRESSION
     Dosage: 7.5 MG;QD; 15 MG;QD; 30 MG;QD;

REACTIONS (2)
  - HYPOAESTHESIA [None]
  - VISUAL IMPAIRMENT [None]
